FAERS Safety Report 4773741-4 (Version None)
Quarter: 2005Q3

REPORT INFORMATION
  Report Type: 
  Country: None (occurrence: None)
  Receive Date: 20050920
  Receipt Date: 20050913
  Transmission Date: 20060218
  Serious: Yes (Hospitalization)
  Sender: FDA-Public Use
  Company Number: 2005PK01709

PATIENT
  Age: 62 Year
  Sex: Male

DRUGS (1)
  1. ASCOTOP [Suspect]
     Indication: MIGRAINE
     Dosage: 5 MG THREE TO FOUR TIMES PER WEEK
     Route: 048
     Dates: start: 20020301

REACTIONS (7)
  - ABDOMINAL PAIN [None]
  - BILIARY DYSKINESIA [None]
  - CHOLESTASIS [None]
  - GASTROINTESTINAL DISORDER [None]
  - GASTROINTESTINAL HYPERMOTILITY [None]
  - JAUNDICE [None]
  - LIVER FUNCTION TEST ABNORMAL [None]
